FAERS Safety Report 11075352 (Version 1)
Quarter: 2015Q2

REPORT INFORMATION
  Report Type: Report from Study
  Country: AU (occurrence: AU)
  Receive Date: 20150429
  Receipt Date: 20150429
  Transmission Date: 20150821
  Serious: Yes (Hospitalization, Other)
  Sender: FDA-Public Use
  Company Number: AU-SA-2015SA050425

PATIENT
  Age: 71 Year
  Sex: Male

DRUGS (7)
  1. CRESTOR [Concomitant]
     Active Substance: ROSUVASTATIN CALCIUM
  2. ACIMAX [Concomitant]
     Active Substance: OMEPRAZOLE
  3. DIABEX [Concomitant]
     Active Substance: METFORMIN HYDROCHLORIDE
  4. BISOPROLOL [Concomitant]
     Active Substance: BISOPROLOL
  5. NORDEP [Concomitant]
  6. AUBAGIO [Suspect]
     Active Substance: TERIFLUNOMIDE
     Route: 048
     Dates: start: 20140721
  7. TRYZAN [Concomitant]

REACTIONS (8)
  - Incontinence [Not Recovered/Not Resolved]
  - Nausea [Unknown]
  - Anaemia [Unknown]
  - Angina unstable [Unknown]
  - Gastric haemorrhage [Unknown]
  - Hypotension [Unknown]
  - Urinary retention [Not Recovered/Not Resolved]
  - Amnesia [Not Recovered/Not Resolved]

NARRATIVE: CASE EVENT DATE: 2015
